FAERS Safety Report 9543687 (Version 3)
Quarter: 2013Q4

REPORT INFORMATION
  Report Type: Report from Study
  Country: US (occurrence: US)
  Receive Date: 20130923
  Receipt Date: 20131219
  Transmission Date: 20140711
  Serious: Yes (Other)
  Sender: FDA-Public Use
  Company Number: US-ABBVIE-13P-163-1132970-00

PATIENT
  Age: 20 Year
  Sex: Female

DRUGS (1)
  1. HUMIRA [Suspect]
     Indication: CROHN^S DISEASE
     Dates: start: 20130621

REACTIONS (16)
  - Fistula [Recovering/Resolving]
  - Pain [Recovering/Resolving]
  - Fistula [Recovering/Resolving]
  - Proctalgia [Recovered/Resolved]
  - Fungal infection [Recovered/Resolved]
  - Anal injury [Recovering/Resolving]
  - Pilonidal cyst [Not Recovered/Not Resolved]
  - Depression [Recovering/Resolving]
  - Treatment noncompliance [Unknown]
  - Vulvovaginal mycotic infection [Not Recovered/Not Resolved]
  - Vaginal discharge [Not Recovered/Not Resolved]
  - Vaginal odour [Not Recovered/Not Resolved]
  - Vulvovaginal pruritus [Not Recovered/Not Resolved]
  - Acne [Not Recovered/Not Resolved]
  - Acne pustular [Not Recovered/Not Resolved]
  - Drug dose omission [Recovered/Resolved]
